FAERS Safety Report 8232140-3 (Version None)
Quarter: 2012Q1

REPORT INFORMATION
  Report Type: 
  Country: None (occurrence: None)
  Receive Date: 20120323
  Receipt Date: 20120321
  Transmission Date: 20120608
  Serious: No
  Sender: FDA-Public Use
  Company Number: US-TEVA-329333USA

PATIENT
  Sex: Female
  Weight: 61.29 kg

DRUGS (11)
  1. GABAPENTIN [Concomitant]
     Indication: FIBROMYALGIA
  2. PANTOPRAZOLE [Concomitant]
     Indication: GASTRITIS
  3. EFFEXOR [Concomitant]
     Indication: FIBROMYALGIA
  4. NORCO [Concomitant]
     Indication: HEADACHE
  5. NARATRIPTAN [Concomitant]
     Indication: MIGRAINE
  6. PLAN B ONE-STEP [Suspect]
     Indication: POST COITAL CONTRACEPTION
     Dosage: 1.5 MILLIGRAM;
     Route: 048
     Dates: start: 20120303, end: 20120303
  7. FLEXERIL [Concomitant]
     Indication: MYALGIA
  8. ZOFRAN [Concomitant]
     Indication: NAUSEA
  9. NORCO [Concomitant]
     Indication: ARTHRALGIA
  10. FLEXERIL [Concomitant]
     Indication: FIBROMYALGIA
  11. CLONAZEPAM [Concomitant]
     Indication: ANXIETY

REACTIONS (8)
  - MIGRAINE [None]
  - MUSCULOSKELETAL STIFFNESS [None]
  - ARTHRALGIA [None]
  - ABDOMINAL PAIN UPPER [None]
  - ANXIETY [None]
  - DIZZINESS [None]
  - NAUSEA [None]
  - DEHYDRATION [None]
